FAERS Safety Report 8943304 (Version 1)
Quarter: 2012Q4

REPORT INFORMATION
  Report Type: 
  Country: US (occurrence: US)
  Receive Date: 20121203
  Receipt Date: 20121203
  Transmission Date: 20130627
  Serious: Yes (Congenital Anomaly, Other)
  Sender: FDA-Public Use
  Company Number: US-PFIZER INC-2012300390

PATIENT
  Sex: Female
  Weight: 3 kg

DRUGS (8)
  1. ZOLOFT [Suspect]
     Dosage: 100 mg, 2x/day
     Route: 064
     Dates: start: 20010101
  2. ZOLOFT [Suspect]
     Dosage: 50 mg, 2x/day
     Route: 064
     Dates: start: 20040511
  3. ZOLOFT [Suspect]
     Dosage: 100 mg, 2x/day
     Route: 064
     Dates: start: 20050121
  4. AMBIEN [Concomitant]
     Dosage: 10 mg, UNK
     Route: 064
     Dates: start: 20041101
  5. CHLORPROMAZINE [Concomitant]
     Dosage: 25 mg, 2x/day
     Route: 064
     Dates: start: 20041101
  6. FLEXERIL [Concomitant]
     Dosage: 10 mg, 3x/day
     Route: 064
     Dates: start: 20041212
  7. FOLIC ACID [Concomitant]
     Dosage: UNK
     Route: 064
     Dates: start: 20041212
  8. PROMETHAZINE [Concomitant]
     Dosage: 25 mg, UNK
     Route: 064
     Dates: start: 20050121

REACTIONS (8)
  - Maternal exposure timing unspecified [Unknown]
  - Heart disease congenital [Unknown]
  - Tricuspid valve incompetence [Unknown]
  - Patent ductus arteriosus [Unknown]
  - Neonatal respiratory distress syndrome [Recovered/Resolved]
  - Infantile apnoeic attack [Unknown]
  - Congenital anaemia [Unknown]
  - Premature baby [Unknown]
